FAERS Safety Report 16765053 (Version 1)
Quarter: 2019Q3

REPORT INFORMATION
  Report Type: Spontaneous
  Country: US (occurrence: US)
  Receive Date: 20190903
  Receipt Date: 20190903
  Transmission Date: 20191005
  Serious: Yes (Hospitalization)
  Sender: FDA-Public Use
  Company Number: US-CIPLA LTD.-2019US06055

PATIENT

DRUGS (3)
  1. DEXAMETHASONE. [Concomitant]
     Active Substance: DEXAMETHASONE
     Indication: BRAIN OEDEMA
     Dosage: UNK, SHORT COURSE
     Route: 065
  2. ORAL CONTRACEPTIVE NOS [Concomitant]
     Active Substance: UNSPECIFIED INGREDIENT
     Indication: PRODUCT USED FOR UNKNOWN INDICATION
     Dosage: UNK, PILLS
     Route: 065
  3. WARFARIN [Suspect]
     Active Substance: WARFARIN
     Indication: CEREBRAL VENOUS THROMBOSIS
     Dosage: UNK
     Route: 065

REACTIONS (1)
  - Disease progression [Recovering/Resolving]
